FAERS Safety Report 11525334 (Version 2)
Quarter: 2015Q4

REPORT INFORMATION
  Report Type: Spontaneous
  Country: US (occurrence: US)
  Receive Date: 20150918
  Receipt Date: 20151113
  Transmission Date: 20160304
  Serious: Yes (Other)
  Sender: FDA-Public Use
  Company Number: US-B.I. PHARMACEUTICALS,INC./RIDGEFIELD-2015-BI-50342BP

PATIENT
  Sex: Male
  Weight: 84 kg

DRUGS (1)
  1. FLOMAX [Suspect]
     Active Substance: TAMSULOSIN HYDROCHLORIDE
     Indication: DYSURIA
     Dosage: 0.4 MG
     Route: 048
     Dates: start: 2006, end: 201503

REACTIONS (3)
  - Dysuria [Unknown]
  - Urine flow decreased [Unknown]
  - Lymphomatoid papulosis [Unknown]

NARRATIVE: CASE EVENT DATE: 2010
